FAERS Safety Report 20012113 (Version 2)
Quarter: 2021Q4

REPORT INFORMATION
  Report Type: Report from Study
  Country: CR (occurrence: CR)
  Receive Date: 20211029
  Receipt Date: 20211111
  Transmission Date: 20220303
  Serious: Yes (Other)
  Sender: FDA-Public Use
  Company Number: CR-ABBVIE-21K-039-4139258-00

PATIENT
  Sex: Female
  Weight: 56 kg

DRUGS (1)
  1. HUMIRA [Suspect]
     Active Substance: ADALIMUMAB
     Indication: Psoriatic arthropathy
     Route: 058
     Dates: start: 20090429

REACTIONS (9)
  - Haemorrhoids [Recovering/Resolving]
  - Gastrointestinal disorder [Recovering/Resolving]
  - Gait disturbance [Not Recovered/Not Resolved]
  - Ligament sprain [Recovering/Resolving]
  - Inflammation [Recovering/Resolving]
  - Arthritis [Recovering/Resolving]
  - Fall [Recovering/Resolving]
  - Arthralgia [Recovering/Resolving]
  - Pain in extremity [Unknown]

NARRATIVE: CASE EVENT DATE: 20180101
